FAERS Safety Report 15132468 (Version 3)
Quarter: 2018Q3

REPORT INFORMATION
  Report Type: Spontaneous
  Country: AM (occurrence: AM)
  Receive Date: 20180712
  Receipt Date: 20180823
  Transmission Date: 20181010
  Serious: Yes (Death, Other)
  Sender: FDA-Public Use
  Company Number: AM-ROCHE-2152142

PATIENT
  Age: 47 Year
  Sex: Female

DRUGS (6)
  1. CYCLOPHOSPHAMIDE. [Concomitant]
     Active Substance: CYCLOPHOSPHAMIDE
     Dosage: 2CYCLES
     Route: 042
     Dates: start: 20170913
  2. PREDNISONE. [Concomitant]
     Active Substance: PREDNISONE
     Dosage: 2 CYCLES
     Route: 048
     Dates: start: 20170912
  3. PARACETAMOL [Concomitant]
     Active Substance: ACETAMINOPHEN
     Dosage: 2CYCLES
     Route: 048
     Dates: start: 20170912
  4. DOXORUBICIN [Concomitant]
     Active Substance: DOXORUBICIN
     Dosage: 2 CYCLES
     Route: 042
     Dates: start: 20170913
  5. VINCRISTINE [Concomitant]
     Active Substance: VINCRISTINE
     Dosage: 2CYCLES
     Route: 042
     Dates: start: 20170913
  6. MABTHERA [Suspect]
     Active Substance: RITUXIMAB
     Indication: DIFFUSE LARGE B-CELL LYMPHOMA
     Dosage: 2CYCLES
     Route: 042
     Dates: start: 20170913

REACTIONS (3)
  - Brain neoplasm malignant [Unknown]
  - Blindness [Not Recovered/Not Resolved]
  - Brain oedema [Fatal]
